FAERS Safety Report 22179388 (Version 1)
Quarter: 2023Q2

REPORT INFORMATION
  Report Type: Spontaneous
  Country: DE (occurrence: DE)
  Receive Date: 20230406
  Receipt Date: 20230406
  Transmission Date: 20230722
  Serious: No
  Sender: FDA-Public Use
  Company Number: DE-ALKEM LABORATORIES LIMITED-DE-ALKEM-2023-00455

PATIENT
  Age: 2 Year
  Sex: Male
  Weight: 17 kg

DRUGS (2)
  1. IBUPROFEN [Suspect]
     Active Substance: IBUPROFEN
     Indication: Pain
     Dosage: 3.5 MILLILITER (ORAL SUSPENSION )
     Route: 048
  2. IBUPROFEN [Suspect]
     Active Substance: IBUPROFEN
     Indication: Pyrexia

REACTIONS (3)
  - Crying [Recovered/Resolved]
  - Screaming [Recovered/Resolved]
  - Cough [Recovered/Resolved]
